FAERS Safety Report 16462773 (Version 4)
Quarter: 2019Q3

REPORT INFORMATION
  Report Type: Spontaneous
  Country: US (occurrence: US)
  Receive Date: 20190621
  Receipt Date: 20190705
  Transmission Date: 20191004
  Serious: No
  Sender: FDA-Public Use
  Company Number: US-ALKERMES INC.-ALK-2019-003234

PATIENT
  Age: 59 Year
  Sex: Female
  Weight: 66.3 kg

DRUGS (16)
  1. ARISTADA [Suspect]
     Active Substance: ARIPIPRAZOLE LAUROXIL
     Dosage: 662 MG, ONE TIME DOSE
     Route: 030
     Dates: start: 20190615
  2. HALOPERIDOL. [Concomitant]
     Active Substance: HALOPERIDOL
     Indication: PRODUCT USED FOR UNKNOWN INDICATION
     Dosage: 5 MG, QAM
     Route: 048
     Dates: start: 20190607, end: 20190617
  3. HALOPERIDOL. [Concomitant]
     Active Substance: HALOPERIDOL
     Dosage: 15 MG, QHS
     Route: 048
     Dates: start: 20190531, end: 20190604
  4. LORAZEPAM. [Concomitant]
     Active Substance: LORAZEPAM
     Dosage: 1 MG, BID
     Route: 048
     Dates: start: 20190524
  5. ARISTADA [Suspect]
     Active Substance: ARIPIPRAZOLE LAUROXIL
     Indication: SCHIZOPHRENIA
     Dosage: 882 MG, QMO
     Route: 030
     Dates: start: 20190615
  6. ARIPIPRAZOLE. [Concomitant]
     Active Substance: ARIPIPRAZOLE
     Indication: PRODUCT USED FOR UNKNOWN INDICATION
     Dosage: 20 MG, QD
     Route: 048
     Dates: start: 20190607, end: 2019
  7. AMLODIPINE [Concomitant]
     Active Substance: AMLODIPINE BESYLATE
     Indication: PRODUCT USED FOR UNKNOWN INDICATION
     Dosage: UNK
     Route: 065
  8. LISINOPRIL. [Concomitant]
     Active Substance: LISINOPRIL
     Indication: PRODUCT USED FOR UNKNOWN INDICATION
     Dosage: UNK
     Route: 065
  9. ABILIFY [Concomitant]
     Active Substance: ARIPIPRAZOLE
     Indication: PRODUCT USED FOR UNKNOWN INDICATION
  10. OXYBUTYNIN. [Concomitant]
     Active Substance: OXYBUTYNIN CHLORIDE
     Indication: PRODUCT USED FOR UNKNOWN INDICATION
     Dosage: UNK
     Route: 065
  11. HALOPERIDOL. [Concomitant]
     Active Substance: HALOPERIDOL
     Dosage: 10 MG, QHS
     Route: 048
     Dates: start: 20190531
  12. LORAZEPAM. [Concomitant]
     Active Substance: LORAZEPAM
     Indication: PRODUCT USED FOR UNKNOWN INDICATION
     Dosage: 0.5 MG, BID
     Route: 048
     Dates: start: 20190607, end: 20190608
  13. HALOPERIDOL. [Concomitant]
     Active Substance: HALOPERIDOL
     Dosage: 15 MG, QD
     Route: 048
     Dates: start: 20190607, end: 20190617
  14. HALOPERIDOL. [Concomitant]
     Active Substance: HALOPERIDOL
     Dosage: 10 MG, QAM
     Route: 048
     Dates: start: 20190604
  15. HALOPERIDOL. [Concomitant]
     Active Substance: HALOPERIDOL
     Dosage: 5 MG, QAM
     Route: 048
     Dates: start: 20190531
  16. HALOPERIDOL. [Concomitant]
     Active Substance: HALOPERIDOL
     Dosage: 5 MG, BID
     Route: 048
     Dates: start: 20190524

REACTIONS (2)
  - Wrong product administered [Recovering/Resolving]
  - Product administration error [Recovering/Resolving]

NARRATIVE: CASE EVENT DATE: 20190615
